FAERS Safety Report 10045104 (Version 1)
Quarter: 2014Q1

REPORT INFORMATION
  Report Type: Spontaneous
  Country: US (occurrence: US)
  Receive Date: 20140328
  Receipt Date: 20140328
  Transmission Date: 20141002
  Serious: No
  Sender: FDA-Public Use
  Company Number: US-009507513-1403USA013168

PATIENT
  Sex: Male

DRUGS (7)
  1. SIMVASTATIN TABLETS, USP [Suspect]
  2. FENTANYL [Concomitant]
  3. OXYCODONE [Concomitant]
  4. CYCLOBENZAPRINE HYDROCHLORIDE [Concomitant]
  5. OMEPRAZOLE [Concomitant]
  6. TRAZODONE HYDROCHLORIDE [Concomitant]
  7. CULTURELLE (LACTOBACILLUS RHAMNOSUS) [Concomitant]

REACTIONS (1)
  - Hallucination [Unknown]
